FAERS Safety Report 22135767 (Version 3)
Quarter: 2023Q2

REPORT INFORMATION
  Report Type: Spontaneous
  Country: US (occurrence: US)
  Receive Date: 20230324
  Receipt Date: 20230622
  Transmission Date: 20230722
  Serious: No
  Sender: FDA-Public Use
  Company Number: US-INCYTE CORPORATION-2023IN002722

PATIENT

DRUGS (3)
  1. JAKAFI [Suspect]
     Active Substance: RUXOLITINIB
     Indication: Myeloproliferative neoplasm
     Dosage: 5 MILLIGRAM, BID
     Route: 048
     Dates: start: 20220805
  2. JAKAFI [Suspect]
     Active Substance: RUXOLITINIB
     Dosage: 5 MILLIGRAM, BID
     Route: 048
     Dates: start: 20220809
  3. JAKAFI [Suspect]
     Active Substance: RUXOLITINIB
     Dosage: 5 MILLIGRAM, QD
     Route: 048
     Dates: start: 20220805

REACTIONS (10)
  - Abdominal distension [Unknown]
  - Abdominal pain [Unknown]
  - Muscular weakness [Unknown]
  - Splenomegaly [Unknown]
  - Anaemia [Unknown]
  - Herpes zoster [Unknown]
  - Off label use [Unknown]
  - Food aversion [Unknown]
  - Gait disturbance [Unknown]
  - Fear of falling [Unknown]

NARRATIVE: CASE EVENT DATE: 20220805
